FAERS Safety Report 20437867 (Version 3)
Quarter: 2023Q2

REPORT INFORMATION
  Report Type: Report from Study
  Country: US (occurrence: US)
  Receive Date: 20220207
  Receipt Date: 20230615
  Transmission Date: 20230721
  Serious: Yes (Other)
  Sender: FDA-Public Use
  Company Number: US-MYLANLABS-2022M1006473

PATIENT
  Age: 61 Year
  Sex: Male

DRUGS (4)
  1. CLOZAPINE [Suspect]
     Active Substance: CLOZAPINE
     Indication: Schizophrenia
     Dosage: 150 MILLIGRAM, BID
     Route: 048
     Dates: end: 20230308
  2. BENZTROPINE [Concomitant]
     Active Substance: BENZTROPINE
     Dosage: UNK
     Route: 065
  3. DIVALPROEX SODIUM [Concomitant]
     Active Substance: DIVALPROEX SODIUM
     Dosage: UNK
     Route: 065
  4. DULOXETINE [Concomitant]
     Active Substance: DULOXETINE
     Dosage: UNK
     Route: 065

REACTIONS (1)
  - Neutropenia [Not Recovered/Not Resolved]

NARRATIVE: CASE EVENT DATE: 20211221
